FAERS Safety Report 22367221 (Version 1)
Quarter: 2023Q2

REPORT INFORMATION
  Report Type: Report from Study
  Country: DE (occurrence: DE)
  Receive Date: 20230525
  Receipt Date: 20230525
  Transmission Date: 20230722
  Serious: Yes (Other)
  Sender: FDA-Public Use
  Company Number: DE-002147023-PHHY2019DE170726

PATIENT
  Sex: Female
  Weight: 62 kg

DRUGS (3)
  1. LETROZOLE [Suspect]
     Active Substance: LETROZOLE
     Indication: Breast cancer metastatic
     Dosage: 2.5 MILLIGRAM, QD, 2.5 MG, QD
     Route: 048
     Dates: start: 20181016, end: 20190309
  2. KISQALI [Suspect]
     Active Substance: RIBOCICLIB
     Indication: Breast cancer metastatic
     Dosage: 600MG, QD SCHEMA21 DAYS INTAKE, THEN 7 DAYS PAUSE
     Route: 048
     Dates: start: 20181016, end: 20181122
  3. KISQALI [Suspect]
     Active Substance: RIBOCICLIB
     Dosage: 600MG, QD SCHEMA21 DAYS INTAKE, THEN 7 DAYS PAUSE
     Route: 048
     Dates: start: 20181206, end: 20190309

REACTIONS (5)
  - Neutropenia [Recovered/Resolved]
  - Haemoglobin decreased [Unknown]
  - Red blood cell count decreased [Unknown]
  - Platelet count decreased [Unknown]
  - White blood cell count decreased [Unknown]

NARRATIVE: CASE EVENT DATE: 20181122
